FAERS Safety Report 9684847 (Version 2)
Quarter: 2013Q4

REPORT INFORMATION
  Report Type: Report from Study
  Country: GB (occurrence: GB)
  Receive Date: 20131112
  Receipt Date: 20131121
  Transmission Date: 20140711
  Serious: Yes (Hospitalization)
  Sender: FDA-Public Use
  Company Number: GB-MERCK-1311GBR002390

PATIENT
  Age: 38 Year
  Sex: Male
  Weight: 60 kg

DRUGS (6)
  1. RIBAVIRIN [Suspect]
     Indication: CHRONIC HEPATITIS C
     Dosage: 1000MG, QD
     Route: 048
     Dates: start: 20130730, end: 20131021
  2. PEGINTERFERON ALFA-2B [Suspect]
     Indication: CHRONIC HEPATITIS C
     Dosage: 96 MICROGRAM, QW
     Route: 058
     Dates: start: 20130730, end: 20131021
  3. METHADONE HYDROCHLORIDE [Concomitant]
     Indication: OSTEOSARCOMA
     Dosage: 30 M/S, QD
     Route: 048
  4. MIRTAZAPINE [Concomitant]
     Indication: DEPRESSION
     Dosage: 45 MG, QD
     Route: 048
  5. ZOLPIDEM TARTRATE [Concomitant]
     Indication: INSOMNIA
     Dosage: 10 MG, QD
     Route: 048
  6. CODEINE PHOSPHATE [Concomitant]
     Indication: PAIN
     Dosage: 60 MG, TID
     Route: 048

REACTIONS (2)
  - Acute myocardial infarction [Recovered/Resolved]
  - Ventricular tachycardia [Recovered/Resolved]
